FAERS Safety Report 9336688 (Version 3)
Quarter: 2014Q2

REPORT INFORMATION
  Report Type: Report from Study
  Country: CN (occurrence: CN)
  Receive Date: 20130607
  Receipt Date: 20140512
  Transmission Date: 20141212
  Serious: Yes (Death)
  Sender: FDA-Public Use
  Company Number: PHHY2013CN057358

PATIENT
  Age: 27 Year
  Sex: Female

DRUGS (2)
  1. GLIVEC [Suspect]
     Indication: ACUTE LYMPHOCYTIC LEUKAEMIA
     Dosage: 400 MG, QD
     Route: 048
     Dates: start: 20120719
  2. GLIVEC [Suspect]
     Indication: CHROMOSOME ANALYSIS ABNORMAL

REACTIONS (1)
  - Death [Fatal]
